FAERS Safety Report 7602980-X (Version None)
Quarter: 2011Q3

REPORT INFORMATION
  Report Type: 
  Country: None (occurrence: None)
  Receive Date: 20110712
  Receipt Date: 20110512
  Transmission Date: 20111222
  Serious: No
  Sender: FDA-Public Use
  Company Number: A0927161A

PATIENT
  Age: 71 Year
  Sex: Male

DRUGS (1)
  1. JALYN [Suspect]
     Dosage: .05MG PER DAY
     Dates: start: 20110428

REACTIONS (2)
  - NOCTURIA [None]
  - DRUG INEFFECTIVE [None]
